FAERS Safety Report 17504703 (Version 2)
Quarter: 2020Q1

REPORT INFORMATION
  Report Type: Spontaneous
  Country: JP (occurrence: JP)
  Receive Date: 20200305
  Receipt Date: 20200325
  Transmission Date: 20200409
  Serious: Yes (Death)
  Sender: FDA-Public Use
  Company Number: JP-DSJP-DSJ-2020-107471

PATIENT

DRUGS (17)
  1. AZOSEMIDE [Concomitant]
     Active Substance: AZOSEMIDE
     Indication: CARDIAC FAILURE CONGESTIVE
     Dosage: 30 MG, QD
     Route: 048
     Dates: start: 20190426, end: 20190430
  2. BISOPROLOL FUMARATE. [Concomitant]
     Active Substance: BISOPROLOL FUMARATE
     Indication: ATRIAL FIBRILLATION
     Dosage: 0.625 MG, QD
     Route: 048
     Dates: start: 20190419, end: 20190430
  3. FUROSEMIDE. [Concomitant]
     Active Substance: FUROSEMIDE
     Dosage: 0.4MG/H, QD
     Route: 041
     Dates: start: 20190423, end: 20190424
  4. LACTEC [Concomitant]
     Active Substance: CALCIUM CHLORIDE ANHYDROUS\POTASSIUM CHLORIDE\SODIUM CHLORIDE\SODIUM LACTATE
     Indication: CARDIAC FAILURE CONGESTIVE
     Dosage: 20ML/H, QD
     Route: 041
     Dates: start: 20190419, end: 20190422
  5. LANIRAPID [Concomitant]
     Active Substance: METILDIGOXIN
     Indication: ATRIAL FIBRILLATION
     Dosage: 0.1 MG, QD
     Route: 048
     Dates: start: 20190419, end: 20190421
  6. PARIET [Concomitant]
     Active Substance: RABEPRAZOLE SODIUM
     Dosage: UNK
     Route: 065
     Dates: start: 20190429, end: 20190430
  7. LANIRAPID [Concomitant]
     Active Substance: METILDIGOXIN
     Dosage: 0.15 MG, BID
     Route: 048
     Dates: start: 20190422, end: 20190430
  8. GLUCOSE [Concomitant]
     Active Substance: DEXTROSE
     Indication: CARDIAC FAILURE CONGESTIVE
     Dosage: 100 ML, QD
     Route: 041
     Dates: start: 20190419, end: 20190428
  9. FUROSEMIDE. [Concomitant]
     Active Substance: FUROSEMIDE
     Dosage: 0.2MG/H, QD
     Route: 041
     Dates: start: 20190425
  10. BEZAFIBRATE [Concomitant]
     Active Substance: BEZAFIBRATE
     Indication: DYSLIPIDAEMIA
     Dosage: 400 MG, BID
     Route: 048
     Dates: start: 20190419, end: 20190430
  11. LACTEC [Concomitant]
     Active Substance: CALCIUM CHLORIDE ANHYDROUS\POTASSIUM CHLORIDE\SODIUM CHLORIDE\SODIUM LACTATE
     Dosage: 10ML/H, QD
     Route: 041
     Dates: start: 20190423, end: 20190424
  12. FEBURIC [Suspect]
     Active Substance: FEBUXOSTAT
     Indication: HYPERURICAEMIA
     Dosage: 10 MG, QD
     Route: 048
     Dates: start: 20190419, end: 20190430
  13. FUROSEMIDE. [Concomitant]
     Active Substance: FUROSEMIDE
     Indication: CARDIAC FAILURE CONGESTIVE
     Dosage: 0.8MG/H, QD
     Route: 041
     Dates: start: 20190419, end: 20190422
  14. LACTEC [Concomitant]
     Active Substance: CALCIUM CHLORIDE ANHYDROUS\POTASSIUM CHLORIDE\SODIUM CHLORIDE\SODIUM LACTATE
     Dosage: 5ML/H, QD
     Route: 041
     Dates: start: 20190425
  15. LIXIANA OD TABLETS 60MG [Suspect]
     Active Substance: EDOXABAN TOSYLATE
     Indication: ATRIAL FIBRILLATION
     Dosage: 60 MG, QD
     Route: 048
     Dates: start: 20190420, end: 20190427
  16. HANP FOR INJECTION 1000 [Suspect]
     Active Substance: CARPERITIDE
     Indication: CARDIAC FAILURE CONGESTIVE
     Dosage: 2000 UG, QD
     Route: 041
     Dates: start: 20190419, end: 20190428
  17. BISOPROLOL FUMARATE. [Concomitant]
     Active Substance: BISOPROLOL FUMARATE
     Indication: CARDIAC FAILURE CONGESTIVE

REACTIONS (2)
  - Thrombocytopenia [Fatal]
  - Cerebellar haemorrhage [Fatal]

NARRATIVE: CASE EVENT DATE: 20190428
